FAERS Safety Report 13213704 (Version 2)
Quarter: 2017Q2

REPORT INFORMATION
  Report Type: Spontaneous
  Country: US (occurrence: US)
  Receive Date: 20170209
  Receipt Date: 20170421
  Transmission Date: 20170830
  Serious: Yes (Hospitalization)
  Sender: FDA-Public Use
  Company Number: US-BAUSCH-BL-2017-003382

PATIENT
  Age: 67 Year
  Sex: Male
  Weight: 64.92 kg

DRUGS (3)
  1. LACTULOSE. [Concomitant]
     Active Substance: LACTULOSE
     Indication: AMMONIA INCREASED
     Dosage: THREE TIMES DAILY, SOMETIMES FOUR TIMES
     Route: 048
     Dates: start: 2010
  2. XIFAXAN [Suspect]
     Active Substance: RIFAXIMIN
     Indication: CONFUSIONAL STATE
     Route: 048
     Dates: start: 20140318
  3. XIFAXAN [Suspect]
     Active Substance: RIFAXIMIN
     Indication: AMMONIA INCREASED

REACTIONS (4)
  - Ammonia increased [Not Recovered/Not Resolved]
  - Weight decreased [Unknown]
  - Confusional state [Unknown]
  - Off label use [Unknown]

NARRATIVE: CASE EVENT DATE: 201612
